FAERS Safety Report 5015798-1 (Version None)
Quarter: 2006Q2

REPORT INFORMATION
  Report Type: 
  Country: None (occurrence: None)
  Receive Date: 20060525
  Receipt Date: 20060509
  Transmission Date: 20061013
  Serious: Yes (Other)
  Sender: FDA-Public Use
  Company Number: 8016994

PATIENT
  Age: 57 Year
  Sex: Female

DRUGS (5)
  1. KEPPRA [Suspect]
     Indication: ANOXIC ENCEPHALOPATHY
     Dosage: 500 MG PO
     Route: 048
  2. KEPPRA [Suspect]
     Indication: MYOCLONUS
     Dosage: 500 MG PO
     Route: 048
  3. RIVOTRIL [Concomitant]
  4. NOORTROPYL [Concomitant]
  5. LEVOTONINE [Concomitant]

REACTIONS (7)
  - ABDOMINAL PAIN [None]
  - ACNE [None]
  - AMNESIA [None]
  - BULIMIA NERVOSA [None]
  - HOMICIDAL IDEATION [None]
  - PSYCHOMOTOR HYPERACTIVITY [None]
  - SUICIDAL IDEATION [None]
